FAERS Safety Report 17636659 (Version 3)
Quarter: 2020Q2

REPORT INFORMATION
  Report Type: Spontaneous
  Country: US (occurrence: US)
  Receive Date: 20200407
  Receipt Date: 20200605
  Transmission Date: 20200713
  Serious: No
  Sender: FDA-Public Use
  Company Number: US-PFIZER INC-2020139511

PATIENT
  Age: 79 Year

DRUGS (1)
  1. PREMARIN [Suspect]
     Active Substance: ESTROGENS, CONJUGATED
     Dosage: 1 G, 1X/DAY (1/2 APPLICATOR FULL, (QHS) AT BED TIME)

REACTIONS (3)
  - Bladder disorder [Unknown]
  - Hypoacusis [Unknown]
  - Off label use [Unknown]
